FAERS Safety Report 4514616-5 (Version None)
Quarter: 2004Q3

REPORT INFORMATION
  Report Type: 
  Country: None (occurrence: None)
  Receive Date: 20040927
  Receipt Date: 20040322
  Transmission Date: 20050211
  Serious: No
  Sender: FDA-Public Use
  Company Number: US070131

PATIENT
  Age: 36 Year
  Sex: Female

DRUGS (1)
  1. NEULASTA [Suspect]
     Indication: AGRANULOCYTOSIS
     Dosage: 6 MG, 1 IN 2 WEEKS, SC
     Route: 058
     Dates: start: 20040318

REACTIONS (4)
  - ABDOMINAL PAIN [None]
  - ARTHRALGIA [None]
  - CHEST PAIN [None]
  - PAIN IN EXTREMITY [None]
